FAERS Safety Report 5330799-1 (Version None)
Quarter: 2007Q2

REPORT INFORMATION
  Report Type: 
  Country: None (occurrence: None)
  Receive Date: 20070516
  Receipt Date: 20070503
  Transmission Date: 20071010
  Serious: Yes (Hospitalization)
  Sender: FDA-Public Use
  Company Number: 2007US000966

PATIENT
  Age: 22 Year
  Sex: Male

DRUGS (12)
  1. PROGRAF [Suspect]
     Indication: KIDNEY TRANSPLANT REJECTION
     Dosage: 2 MG, BID, ORAL
     Route: 048
     Dates: start: 20050303
  2. MYCOPHENOLATE MOFETIL [Suspect]
     Indication: KIDNEY TRANSPLANT REJECTION
     Dosage: 1000 MG, BID, ORAL
     Route: 048
     Dates: start: 20050303
  3. PREDNISONE TAB [Suspect]
     Indication: KIDNEY TRANSPLANT REJECTION
     Dosage: 10 MG, UID/QD, ORAL
     Route: 048
     Dates: start: 20050303
  4. BACTRIM (TRIMETHOPRIM) [Concomitant]
  5. BACTOBAN (MUPIROCIN) [Concomitant]
  6. CALCIUM WITH VITAMIN D (ERGOCALCIFEROL, CALCIUM SODIUM LACTATE, CALCIU [Concomitant]
  7. MAGNESIUM OXIDE (MAGNESIUM OXIDE) [Concomitant]
  8. METOPROLOL TARTRATE [Concomitant]
  9. MULTIVITAMIN [Concomitant]
  10. NORVASC [Concomitant]
  11. PROTONIX [Concomitant]
  12. EFFEXOR [Concomitant]

REACTIONS (1)
  - SUICIDE ATTEMPT [None]
